FAERS Safety Report 8363933-X (Version None)
Quarter: 2012Q2

REPORT INFORMATION
  Report Type: 
  Country: None (occurrence: None)
  Receive Date: 20120516
  Receipt Date: 20120503
  Transmission Date: 20120825
  Serious: No
  Sender: FDA-Public Use
  Company Number: US-ASTRAZENECA-2012SE28045

PATIENT
  Age: 76 Year
  Sex: Female
  Weight: 60.3 kg

DRUGS (6)
  1. MULTI-VITAMINS [Concomitant]
  2. CALTRATE D [Concomitant]
     Indication: BONE DISORDER
  3. BLOOD PRESSURE MEDICATION [Concomitant]
  4. CHOLESTEROL MEDICATION [Concomitant]
  5. BRILINTA [Suspect]
     Indication: STENT PLACEMENT
     Route: 048
     Dates: start: 20120322
  6. ZYRTEC [Concomitant]
     Indication: HYPERSENSITIVITY

REACTIONS (4)
  - URTICARIA [None]
  - PRURITUS [None]
  - WEIGHT DECREASED [None]
  - CONTUSION [None]
